FAERS Safety Report 11223018 (Version 1)
Quarter: 2015Q2

REPORT INFORMATION
  Report Type: Spontaneous
  Country: GB (occurrence: GB)
  Receive Date: 20150626
  Receipt Date: 20150626
  Transmission Date: 20150821
  Serious: Yes (Hospitalization)
  Sender: FDA-Public Use
  Company Number: GB-MYLANLABS-2015M1021162

PATIENT

DRUGS (8)
  1. DEXAMETHASONE. [Suspect]
     Active Substance: DEXAMETHASONE
     Indication: REHABILITATION THERAPY
     Dosage: 12 MG PER DAY
     Route: 065
     Dates: start: 201009
  2. DEXAMETHASONE. [Suspect]
     Active Substance: DEXAMETHASONE
     Dosage: 6 MG PER DAY
     Route: 065
     Dates: start: 201101
  3. DEXAMETHASONE. [Suspect]
     Active Substance: DEXAMETHASONE
     Dosage: 9 MG PER DAY
     Route: 065
     Dates: start: 201104
  4. DEXAMETHASONE. [Suspect]
     Active Substance: DEXAMETHASONE
     Indication: HEADACHE
     Dosage: 4 MG PER DAY
     Route: 065
     Dates: start: 201001
  5. DEXAMETHASONE. [Suspect]
     Active Substance: DEXAMETHASONE
     Indication: PARAESTHESIA
     Dosage: 6 MG PER DAY
     Route: 065
     Dates: start: 200912
  6. DEXAMETHASONE. [Suspect]
     Active Substance: DEXAMETHASONE
     Dosage: 16 MG PER DAY
     Route: 065
     Dates: start: 201102
  7. DEXAMETHASONE. [Suspect]
     Active Substance: DEXAMETHASONE
     Dosage: 11 MG PER DAY; REDUCED TO 9 MG PER DAY
     Route: 065
     Dates: start: 201104
  8. DEXAMETHASONE. [Suspect]
     Active Substance: DEXAMETHASONE
     Dosage: 16 MG PER DAY
     Route: 065
     Dates: start: 201105, end: 201107

REACTIONS (2)
  - Epidural lipomatosis [Recovering/Resolving]
  - Spinal cord compression [Recovering/Resolving]

NARRATIVE: CASE EVENT DATE: 201105
